FAERS Safety Report 7597196-X (Version None)
Quarter: 2011Q3

REPORT INFORMATION
  Report Type: 
  Country: None (occurrence: None)
  Receive Date: 20110708
  Receipt Date: 20100816
  Transmission Date: 20111222
  Serious: Yes (Other)
  Sender: FDA-Public Use
  Company Number: US-GLAXOSMITHKLINE-A0876864A

PATIENT
  Age: 8 Year
  Sex: Female

DRUGS (4)
  1. XOPENEX [Suspect]
     Indication: ASTHMA
     Route: 055
     Dates: start: 20090101
  2. FLOVENT [Suspect]
     Indication: ASTHMA
     Dosage: 440MCG TWICE PER DAY
     Route: 055
     Dates: start: 20100407, end: 20100501
  3. QVAR 40 [Concomitant]
     Dates: start: 20090101
  4. NONE [Concomitant]

REACTIONS (3)
  - ADRENAL SUPPRESSION [None]
  - FATIGUE [None]
  - WEIGHT INCREASED [None]
